FAERS Safety Report 9632038 (Version 1)
Quarter: 2013Q4

REPORT INFORMATION
  Report Type: Spontaneous
  Country: US (occurrence: None)
  Receive Date: 20131017
  Receipt Date: 20131017
  Transmission Date: 20140711
  Serious: Yes (Life-Threatening, Hospitalization, Disabling)
  Sender: FDA-Public Use
  Company Number: None

PATIENT
  Age: 22 Year
  Sex: Female
  Weight: 71.22 kg

DRUGS (1)
  1. NUVARING [Suspect]
     Dates: start: 20110301, end: 20130901

REACTIONS (4)
  - Arthralgia [None]
  - Pain in extremity [None]
  - Thrombosis [None]
  - Arm amputation [None]
